FAERS Safety Report 18480393 (Version 2)
Quarter: 2021Q1

REPORT INFORMATION
  Report Type: Spontaneous
  Country: PT (occurrence: PT)
  Receive Date: 20201109
  Receipt Date: 20210105
  Transmission Date: 20210419
  Serious: Yes (Disabling)
  Sender: FDA-Public Use
  Company Number: PT-TEVA-2020-PT-1845201

PATIENT
  Age: 52 Year
  Sex: Female

DRUGS (1)
  1. DULOXETINE. [Suspect]
     Active Substance: DULOXETINE
     Dosage: 1 DOSAGE FORMS DAILY;  EARLY IN THE DAY
     Route: 048

REACTIONS (3)
  - Hallucination [Unknown]
  - Intellectual disability [Unknown]
  - Insomnia [Unknown]
